FAERS Safety Report 5127061-9 (Version None)
Quarter: 2006Q4

REPORT INFORMATION
  Report Type: 
  Country: None (occurrence: None)
  Receive Date: 20061013
  Receipt Date: 20061006
  Transmission Date: 20070319
  Serious: Yes (Death, Hospitalization)
  Sender: FDA-Public Use
  Company Number: US-JNJFOC-20051104569

PATIENT
  Sex: Female
  Weight: 91.63 kg

DRUGS (3)
  1. ORTHO EVRA [Suspect]
     Indication: ACNE
     Route: 062
     Dates: start: 20020101, end: 20030101
  2. ORTHO TRI-CYCLEN [Suspect]
     Route: 048
  3. ORTHO TRI-CYCLEN [Suspect]
     Indication: ACNE
     Route: 048

REACTIONS (5)
  - BUDD-CHIARI SYNDROME [None]
  - DEEP VEIN THROMBOSIS [None]
  - INTESTINAL INFARCTION [None]
  - PULMONARY EMBOLISM [None]
  - VENOUS THROMBOSIS [None]
